FAERS Safety Report 25032155 (Version 1)
Quarter: 2025Q1

REPORT INFORMATION
  Report Type: Spontaneous
  Country: IE (occurrence: IE)
  Receive Date: 20250303
  Receipt Date: 20250303
  Transmission Date: 20250408
  Serious: Yes (Hospitalization, Other)
  Sender: BAYER HEALTHCARE PHARMACEUTICALS INC.
  Company Number: None

PATIENT
  Age: 47 Year
  Sex: Female
  Weight: 61.29 kg

DRUGS (3)
  1. MIRENA [Suspect]
     Active Substance: LEVONORGESTREL
     Indication: Contraception
     Dosage: 20?G/DAY
     Route: 015
     Dates: start: 20240906, end: 20240911
  2. MIRENA [Suspect]
     Active Substance: LEVONORGESTREL
     Indication: Hormone replacement therapy
  3. MIRENA [Suspect]
     Active Substance: LEVONORGESTREL
     Indication: Uterine leiomyoma

REACTIONS (11)
  - Pelvic inflammatory disease [Recovered/Resolved]
  - Sepsis [Recovered/Resolved]
  - Drug ineffective [None]
  - Abdominal pain [Recovered/Resolved]
  - Chills [Recovered/Resolved]
  - Nausea [Recovered/Resolved]
  - Tremor [Recovered/Resolved]
  - Pain of skin [Recovered/Resolved]
  - Asthenia [Recovered/Resolved]
  - Delirium [Recovered/Resolved]
  - Malaise [Recovered/Resolved]

NARRATIVE: CASE EVENT DATE: 20240907
